FAERS Safety Report 16354091 (Version 1)
Quarter: 2019Q2

REPORT INFORMATION
  Report Type: Report from Study
  Country: US (occurrence: US)
  Receive Date: 20190524
  Receipt Date: 20190524
  Transmission Date: 20190711
  Serious: Yes (Hospitalization)
  Sender: FDA-Public Use
  Company Number: PHEH2019US021528

PATIENT
  Sex: Male

DRUGS (2)
  1. WARFARIN [Suspect]
     Active Substance: WARFARIN
     Indication: PRODUCT USED FOR UNKNOWN INDICATION
     Route: 065
  2. ENTRESTO [Suspect]
     Active Substance: SACUBITRIL\VALSARTAN
     Indication: PRODUCT USED FOR UNKNOWN INDICATION
     Dosage: 1 DF, (97 MG OF SACUBITRIL/103 MG OF VALSARTAN), BID
     Route: 048
     Dates: start: 2015

REACTIONS (5)
  - Renal failure [Unknown]
  - Hepatic failure [Unknown]
  - Feeling abnormal [Unknown]
  - Device issue [Unknown]
  - Weight decreased [Unknown]
